FAERS Safety Report 25851217 (Version 2)
Quarter: 2025Q4

REPORT INFORMATION
  Report Type: Spontaneous
  Country: US (occurrence: US)
  Receive Date: 20250926
  Receipt Date: 20251001
  Transmission Date: 20260118
  Serious: No
  Sender: Kenvue
  Company Number: US-KENVUE-20250905010

PATIENT

DRUGS (2)
  1. TYLENOL [Suspect]
     Active Substance: ACETAMINOPHEN
     Indication: Product used for unknown indication
     Dosage: UNK
     Route: 064
  2. Measles, mumps and rubella [Concomitant]
     Indication: Product used for unknown indication
     Route: 065

REACTIONS (2)
  - Ill-defined disorder [Unknown]
  - Foetal exposure during pregnancy [Unknown]
